FAERS Safety Report 17130864 (Version 1)
Quarter: 2019Q4

REPORT INFORMATION
  Report Type: Spontaneous
  Country: US (occurrence: US)
  Receive Date: 20191209
  Receipt Date: 20191209
  Transmission Date: 20200122
  Serious: No
  Sender: FDA-Public Use
  Company Number: US-ROCHE-2296913

PATIENT
  Age: 54 Year
  Sex: Female

DRUGS (5)
  1. VALIUM [Suspect]
     Active Substance: DIAZEPAM
     Indication: PRODUCT USED FOR UNKNOWN INDICATION
     Route: 065
  2. ACETAMINOPHEN/HYDROCODONE [Concomitant]
     Active Substance: ACETAMINOPHEN\HYDROCODONE
     Dosage: 7.5/325 MG ONE TABLET EVERY 6 HOURS AS NEEDED
     Route: 065
  3. TIZANIDINE. [Concomitant]
     Active Substance: TIZANIDINE
  4. DULOXETINE. [Concomitant]
     Active Substance: DULOXETINE
  5. GABAPENTIN. [Concomitant]
     Active Substance: GABAPENTIN

REACTIONS (2)
  - No adverse event [Unknown]
  - Intentional product misuse [Unknown]
